FAERS Safety Report 24950015 (Version 2)
Quarter: 2025Q2

REPORT INFORMATION
  Report Type: Spontaneous
  Country: PT (occurrence: PT)
  Receive Date: 20250210
  Receipt Date: 20250414
  Transmission Date: 20250716
  Serious: Yes (Other)
  Sender: GLAXOSMITHKLINE
  Company Number: None

PATIENT

DRUGS (1)
  1. FLUTICASONE FUROATE [Suspect]
     Active Substance: FLUTICASONE FUROATE
     Indication: Product used for unknown indication
     Dosage: 27.5 ?G, BID(1 PUFF 2X/DAY)
     Route: 045
     Dates: start: 20250113, end: 20250115

REACTIONS (5)
  - Ocular hyperaemia [Unknown]
  - Conjunctivitis [Unknown]
  - Nasal mucosal ulcer [Unknown]
  - Presyncope [Recovered/Resolved]
  - Foreign body sensation in eyes [Unknown]

NARRATIVE: CASE EVENT DATE: 20240113
